FAERS Safety Report 7359860-7 (Version None)
Quarter: 2011Q1

REPORT INFORMATION
  Report Type: 
  Country: None (occurrence: None)
  Receive Date: 20110317
  Receipt Date: 20110308
  Transmission Date: 20110831
  Serious: Yes (Hospitalization, Other)
  Sender: FDA-Public Use
  Company Number: PHHO2011DE02772

PATIENT
  Sex: Female
  Weight: 99 kg

DRUGS (10)
  1. TRACLEER [Concomitant]
     Indication: PULMONARY ARTERIAL HYPERTENSION
  2. SPIRONOLACTONE [Concomitant]
     Indication: PULMONARY ARTERIAL HYPERTENSION
  3. MARCUMAR [Concomitant]
     Indication: PULMONARY ARTERIAL HYPERTENSION
  4. OXYGEN [Concomitant]
  5. STI571/CGP57148B [Suspect]
     Indication: PULMONARY ARTERIAL HYPERTENSION
     Dosage: UNK
     Route: 048
     Dates: start: 20110204, end: 20110224
  6. KALINOR-RETARD P [Concomitant]
     Indication: PROPHYLAXIS
  7. REVATIO [Concomitant]
     Indication: PULMONARY ARTERIAL HYPERTENSION
  8. SILDENAFIL [Concomitant]
  9. TOREM [Concomitant]
     Indication: PULMONARY ARTERIAL HYPERTENSION
  10. EUTHYROX [Concomitant]
     Indication: HYPOTHYROIDISM

REACTIONS (19)
  - CARDIOMEGALY [None]
  - ELECTROCARDIOGRAM T WAVE INVERSION [None]
  - GENERAL PHYSICAL HEALTH DETERIORATION [None]
  - MYALGIA [None]
  - FLUID RETENTION [None]
  - COUGH [None]
  - OEDEMA PERIPHERAL [None]
  - WEIGHT INCREASED [None]
  - INSOMNIA [None]
  - RIGHT VENTRICULAR FAILURE [None]
  - PULMONARY CONGESTION [None]
  - DYSPNOEA EXERTIONAL [None]
  - PYREXIA [None]
  - ELECTROCARDIOGRAM ST SEGMENT DEPRESSION [None]
  - SENSORY DISTURBANCE [None]
  - LYMPHADENOPATHY [None]
  - RESPIRATORY FAILURE [None]
  - CHEST DISCOMFORT [None]
  - PALPITATIONS [None]
